FAERS Safety Report 12921013 (Version 1)
Quarter: 2016Q4

REPORT INFORMATION
  Report Type: Spontaneous
  Country: US (occurrence: US)
  Receive Date: 20161108
  Receipt Date: 20161108
  Transmission Date: 20170207
  Serious: Yes (Life-Threatening, Other)
  Sender: FDA-Public Use
  Company Number: None

PATIENT
  Age: 70 Year
  Sex: Female
  Weight: 88.45 kg

DRUGS (11)
  1. PLAVIX [Concomitant]
     Active Substance: CLOPIDOGREL BISULFATE
  2. FUROSEMIDE. [Concomitant]
     Active Substance: FUROSEMIDE
  3. MOTORIZE WHEELCHAIR [Concomitant]
  4. VALSARTAN RANBAXY [Suspect]
     Active Substance: VALSARTAN
     Indication: THERAPY CHANGE
     Route: 048
     Dates: start: 201606, end: 201606
  5. KEFLEX [Concomitant]
     Active Substance: CEPHALEXIN
  6. TYLENOL [Concomitant]
     Active Substance: ACETAMINOPHEN
  7. LANTUS [Concomitant]
     Active Substance: INSULIN GLARGINE
  8. VITAMIN D3 [Concomitant]
     Active Substance: CHOLECALCIFEROL
  9. GLUCOSE TEST METERD SUPPLIES [Concomitant]
  10. VALSARTAN RANBAXY [Suspect]
     Active Substance: VALSARTAN
     Indication: HYPERTENSION
     Route: 048
     Dates: start: 201606, end: 201606
  11. VITAMIN A [Concomitant]
     Active Substance: VITAMIN A

REACTIONS (4)
  - Joint swelling [None]
  - Blood glucose increased [None]
  - Blood pressure fluctuation [None]
  - Peripheral swelling [None]

NARRATIVE: CASE EVENT DATE: 201606
